FAERS Safety Report 18445278 (Version 1)
Quarter: 2020Q4

REPORT INFORMATION
  Report Type: Spontaneous
  Country: US (occurrence: US)
  Receive Date: 20201030
  Receipt Date: 20201030
  Transmission Date: 20210114
  Serious: No
  Sender: FDA-Public Use
  Company Number: US-BEH-2020123897

PATIENT
  Age: 10 Year
  Sex: Male

DRUGS (4)
  1. GUANFACINE HYDROCHLORIDE. [Concomitant]
     Active Substance: GUANFACINE HYDROCHLORIDE
     Dosage: 1 MILLIGRAM
     Route: 065
  2. CONCERTA [Concomitant]
     Active Substance: METHYLPHENIDATE HYDROCHLORIDE
     Dosage: 18 MILLIGRAM
     Route: 065
  3. MELATONIN [Concomitant]
     Active Substance: MELATONIN
  4. HIZENTRA [Suspect]
     Active Substance: HUMAN IMMUNOGLOBULIN G
     Indication: HYPOGAMMAGLOBULINAEMIA
     Dosage: NEVER FILLED
     Route: 065
     Dates: start: 2019

REACTIONS (2)
  - Nasopharyngitis [Recovered/Resolved]
  - Infusion site pain [Recovered/Resolved]

NARRATIVE: CASE EVENT DATE: 202010
